FAERS Safety Report 20190943 (Version 10)
Quarter: 2023Q4

REPORT INFORMATION
  Report Type: Report from Study
  Country: IT (occurrence: IT)
  Receive Date: 20211216
  Receipt Date: 20231123
  Transmission Date: 20240110
  Serious: Yes (Hospitalization, Other)
  Sender: FDA-Public Use
  Company Number: IT-CELLTRION INC.-2021IT016802

PATIENT

DRUGS (64)
  1. RITUXIMAB [Suspect]
     Active Substance: RITUXIMAB
     Indication: Diffuse large B-cell lymphoma
     Dosage: 375 MG/M2, EVERY 3 WEEKS (ON 05/NOV/2021, SHE RECEIVED MOST RECENT DOSE 375 MG/M2 OF RITUXIMAB PRIOR
     Route: 042
     Dates: start: 20211015
  2. CYCLOPHOSPHAMIDE [Suspect]
     Active Substance: CYCLOPHOSPHAMIDE
     Indication: Diffuse large B-cell lymphoma
     Dosage: 750 MG/M2, EVERY 3 WEEKS (ON 05/NOV/2021, SHE RECEIVED MOST RECENT DOSE 750 MG/M2 OF CYCLOPHOSPHAMID
     Route: 042
     Dates: start: 20211015
  3. DOXORUBICIN [Suspect]
     Active Substance: DOXORUBICIN
     Indication: Diffuse large B-cell lymphoma
     Dosage: 50 MG/M2, EVERY 3 WEEKS (ON 05/NOV/2021, SHE RECEIVED MOST RECENT DOSE 50 MG/M2 OF DOXORUBICIN PRIOR
     Route: 042
     Dates: start: 20211015
  4. GLOFITAMAB [Suspect]
     Active Substance: GLOFITAMAB
     Indication: Diffuse large B-cell lymphoma
     Dosage: 1.2 MG, EVERY 3 WEEKS (ON 12/NOV/2021, SHE RECEIVED MOST RECENT DOSE 1.2 MG OF GLOFITAMAB PRIOR TO S
     Route: 042
     Dates: start: 20211112
  5. GLOFITAMAB [Suspect]
     Active Substance: GLOFITAMAB
     Dosage: UNK
  6. METHYLPREDNISOLONE [Suspect]
     Active Substance: METHYLPREDNISOLONE
     Indication: Diffuse large B-cell lymphoma
     Dosage: 80 MG, ON 05/NOV/2021, SHE RECEIVED MOST RECENT DOSE OF METHYLPREDNISOLONE 80 MG PRIOR AE; ON 25/FEB
     Route: 048
     Dates: start: 20211015
  7. METHYLPREDNISOLONE [Suspect]
     Active Substance: METHYLPREDNISOLONE
     Dosage: 80 MG
     Route: 042
     Dates: start: 20211203, end: 20211203
  8. METHYLPREDNISOLONE [Suspect]
     Active Substance: METHYLPREDNISOLONE
     Dosage: 80 MG (ONGOING: NO; GIVEN FOR PROPHYLAXIS : YES)
     Route: 042
     Dates: start: 20211224, end: 20211224
  9. PREDNISONE [Suspect]
     Active Substance: PREDNISONE
     Indication: Diffuse large B-cell lymphoma
     Dosage: 100 MG, ON 09/NOV/2021, SHE RECEIVED MOST RECENT DOSE OF STUDY PREDNISONE PRIOR TO AE; ON 01/MAR/202
     Route: 048
     Dates: start: 20211016
  10. VINCRISTINE [Suspect]
     Active Substance: VINCRISTINE
     Indication: Diffuse large B-cell lymphoma
     Dosage: 1.4 MG/M2, EVERY 3 WEEKS (ON 05/NOV/2021, SHE RECEIVED MOST RECENT DOSE 1.4 MG/M2 OF VINCRISTINE PRI
     Route: 042
     Dates: start: 20211015
  11. ALLOPURINOL [Concomitant]
     Active Substance: ALLOPURINOL
     Dosage: ONGOING: YES
     Dates: start: 20210928
  12. BACTRIM [Concomitant]
     Active Substance: SULFAMETHOXAZOLE\TRIMETHOPRIM
     Dosage: ONGOING: YES
     Dates: start: 20211015
  13. ERYTHROPOIETIN [Concomitant]
     Active Substance: ERYTHROPOIETIN
     Indication: Anaemia
     Dosage: UNK
     Dates: start: 20211202, end: 20220303
  14. CHLORPHENIRAMINE MALEATE [Concomitant]
     Active Substance: CHLORPHENIRAMINE MALEATE
     Indication: Premedication
     Dosage: 10 MG (GIVEN FOR PROPHYLAXIS)
     Dates: start: 20211015, end: 20211015
  15. CHLORPHENIRAMINE MALEATE [Concomitant]
     Active Substance: CHLORPHENIRAMINE MALEATE
     Dosage: 10 MG
     Dates: start: 20211105, end: 20211105
  16. CHLORPHENIRAMINE MALEATE [Concomitant]
     Active Substance: CHLORPHENIRAMINE MALEATE
     Dosage: 10 MG
     Dates: start: 20211112, end: 20211112
  17. CHLORPHENIRAMINE MALEATE [Concomitant]
     Active Substance: CHLORPHENIRAMINE MALEATE
     Dosage: 10 MG
     Dates: start: 20211123, end: 20211123
  18. CHLORPHENIRAMINE MALEATE [Concomitant]
     Active Substance: CHLORPHENIRAMINE MALEATE
     Dosage: 10 MG
     Dates: start: 20211203, end: 20211203
  19. CHLORPHENIRAMINE MALEATE [Concomitant]
     Active Substance: CHLORPHENIRAMINE MALEATE
     Dosage: 10 MG (ONGOING: NO, GIVEN FOR PROPHYLAXIS: YES)
     Dates: start: 20211210, end: 20211210
  20. CHLORPHENIRAMINE MALEATE [Concomitant]
     Active Substance: CHLORPHENIRAMINE MALEATE
     Dosage: 10 MG (ONGOING: NO, GIVEN FOR PROPHYLAXIS: YES)
     Dates: start: 20211224, end: 20211224
  21. CHLORPHENIRAMINE MALEATE [Concomitant]
     Active Substance: CHLORPHENIRAMINE MALEATE
     Dosage: 10 MG (ONGOING: NO, GIVEN FOR PROPHYLAXIS: YES)
     Dates: start: 20211231, end: 20211231
  22. CHLORPHENIRAMINE MALEATE [Concomitant]
     Active Substance: CHLORPHENIRAMINE MALEATE
     Dosage: 10 MG
     Dates: start: 20220114, end: 20220114
  23. CHLORPHENIRAMINE MALEATE [Concomitant]
     Active Substance: CHLORPHENIRAMINE MALEATE
     Dosage: 10 MG
     Dates: start: 20220121, end: 20220121
  24. CHLORPHENIRAMINE MALEATE [Concomitant]
     Active Substance: CHLORPHENIRAMINE MALEATE
     Dosage: 10 MG
     Dates: start: 20220225, end: 20220225
  25. CHLORPHENIRAMINE MALEATE [Concomitant]
     Active Substance: CHLORPHENIRAMINE MALEATE
     Dosage: 10 MILLIGRAM
     Dates: start: 20220304, end: 20220304
  26. PREDNISONE [Concomitant]
     Active Substance: PREDNISONE
     Dosage: ONGOING: YES
     Dates: start: 20210928
  27. DEXAMETHASONE [Concomitant]
     Active Substance: DEXAMETHASONE
     Indication: Cytokine release syndrome
     Dosage: 20 MG
     Dates: start: 20211112, end: 20211112
  28. DEXAMETHASONE [Concomitant]
     Active Substance: DEXAMETHASONE
     Indication: Prophylaxis
     Dosage: 20 MG
     Dates: start: 20211123, end: 20211123
  29. DEXAMETHASONE [Concomitant]
     Active Substance: DEXAMETHASONE
     Dosage: UNK
     Dates: start: 20211124, end: 20211124
  30. DEXAMETHASONE [Concomitant]
     Active Substance: DEXAMETHASONE
     Dosage: 20 MG (ONGOING: NO; GIVEN FOR PROPHYLAXIS: YES)
     Dates: start: 20211210, end: 20211210
  31. DEXAMETHASONE [Concomitant]
     Active Substance: DEXAMETHASONE
     Dosage: 20 MG (ONGOING: NO; GIVEN FOR PROPHYLAXIS: YES)
     Route: 042
     Dates: start: 20211231, end: 20211231
  32. DEXAMETHASONE [Concomitant]
     Active Substance: DEXAMETHASONE
     Dosage: 20 MG (ONGOING: NO; GIVEN FOR PROPHYLAXIS: YES)
     Dates: start: 20220121, end: 20220121
  33. DEXAMETHASONE [Concomitant]
     Active Substance: DEXAMETHASONE
     Dosage: 20 MG
     Dates: start: 20220304, end: 20220304
  34. CHOLECALCIFEROL [Concomitant]
     Active Substance: CHOLECALCIFEROL
     Dosage: ONGOING: YES
     Dates: start: 20211104
  35. FENTANYL [Concomitant]
     Active Substance: FENTANYL\FENTANYL CITRATE
     Dosage: ONGOING: YES
     Dates: start: 20210928
  36. FENTANYL [Concomitant]
     Active Substance: FENTANYL\FENTANYL CITRATE
     Dosage: UNK
     Dates: start: 20220210
  37. LASIX [Concomitant]
     Active Substance: FUROSEMIDE
     Indication: Oedema peripheral
     Dosage: ONGOING: YES
     Dates: start: 20211209
  38. LYRICA [Concomitant]
     Active Substance: PREGABALIN
     Dosage: UNK
     Dates: start: 20220214, end: 20220303
  39. METHYLPREDNISOLONE [Concomitant]
     Active Substance: METHYLPREDNISOLONE
     Dosage: 80 MG
     Dates: start: 20210114, end: 20220114
  40. METHYLPREDNISOLONE [Concomitant]
     Active Substance: METHYLPREDNISOLONE
     Dosage: 80 MG
     Dates: start: 20211105, end: 20211105
  41. METHYLPREDNISOLONE [Concomitant]
     Active Substance: METHYLPREDNISOLONE
     Dosage: 80 MG
     Dates: start: 20211015, end: 20211015
  42. MYCOSTATIN [Concomitant]
     Active Substance: NYSTATIN
     Dosage: ONGOING: YES
     Dates: start: 20211104
  43. ONDANSETRON [Concomitant]
     Active Substance: ONDANSETRON
     Dosage: 8 MG, ONGOING: NO, GIVEN FOR PROPHYLAXIS : YES
     Dates: start: 20211224, end: 20211224
  44. ONDANSETRON [Concomitant]
     Active Substance: ONDANSETRON
     Dosage: 8 MG, ONGOING: NO, GIVEN FOR PROPHYLAXIS : YES
     Dates: start: 20220114, end: 20220114
  45. ONDANSETRON [Concomitant]
     Active Substance: ONDANSETRON
     Dosage: 8 MG
     Dates: start: 20220225, end: 20220225
  46. PANTOPRAZOLE SODIUM [Concomitant]
     Active Substance: PANTOPRAZOLE SODIUM
     Indication: Gastrointestinal disorder prophylaxis
     Dosage: ONGOING: YES
     Dates: start: 20210928
  47. ACETAMINOPHEN [Concomitant]
     Active Substance: ACETAMINOPHEN
     Indication: Premedication
     Dosage: 1000 MG (GIVEN FOR PROPHYLAXIS)
     Dates: start: 20211015, end: 20211015
  48. ACETAMINOPHEN [Concomitant]
     Active Substance: ACETAMINOPHEN
     Dosage: 1000 MG
     Dates: start: 20211105, end: 20211105
  49. ACETAMINOPHEN [Concomitant]
     Active Substance: ACETAMINOPHEN
     Dosage: 1000 MG
     Dates: start: 20211112, end: 20211112
  50. ACETAMINOPHEN [Concomitant]
     Active Substance: ACETAMINOPHEN
     Dosage: 1000 MG
     Dates: start: 20211123, end: 20211123
  51. ACETAMINOPHEN [Concomitant]
     Active Substance: ACETAMINOPHEN
     Dosage: 1000 MG
     Dates: start: 20211203, end: 20211203
  52. ACETAMINOPHEN [Concomitant]
     Active Substance: ACETAMINOPHEN
     Dosage: 1000 MG (ONGOING NO; GIVEN FOR PROPHYLAXIS YES)
     Dates: start: 20211210, end: 20211210
  53. ACETAMINOPHEN [Concomitant]
     Active Substance: ACETAMINOPHEN
     Dosage: 1000 MG (ONGOING NO; GIVEN FOR PROPHYLAXIS YES)
     Dates: start: 20211224, end: 20211224
  54. ACETAMINOPHEN [Concomitant]
     Active Substance: ACETAMINOPHEN
     Dosage: 1000 MG (ONGOING NO; GIVEN FOR PROPHYLAXIS YES)
     Dates: start: 20211231, end: 20211231
  55. ACETAMINOPHEN [Concomitant]
     Active Substance: ACETAMINOPHEN
     Dosage: 1000 MG (ONGOING NO; GIVEN FOR PROPHYLAXIS YES)
     Dates: start: 20220114, end: 20220114
  56. ACETAMINOPHEN [Concomitant]
     Active Substance: ACETAMINOPHEN
     Dosage: 1000 MG (ONGOING NO, GIVEN FOR PROPHYLAXIS YES)
     Dates: start: 20220121, end: 20220121
  57. ACETAMINOPHEN [Concomitant]
     Active Substance: ACETAMINOPHEN
     Dosage: 1000 MG
     Dates: start: 20220225, end: 20220225
  58. ACETAMINOPHEN [Concomitant]
     Active Substance: ACETAMINOPHEN
     Dosage: 1000 MG
     Dates: start: 20220304, end: 20220304
  59. ZARXIO [Concomitant]
     Active Substance: FILGRASTIM-SNDZ
     Indication: Prophylaxis
     Dosage: ONGOING: NO
     Dates: start: 20211107, end: 20211109
  60. FILGRASTIM [Concomitant]
     Active Substance: FILGRASTIM
     Indication: Prophylaxis
     Dosage: ONGOING: NO
     Dates: start: 20211020, end: 20211022
  61. FILGRASTIM [Concomitant]
     Active Substance: FILGRASTIM
     Dosage: ONGOING: NO
     Dates: start: 20211206, end: 20211208
  62. FILGRASTIM [Concomitant]
     Active Substance: FILGRASTIM
     Dosage: ONGOING: NO
     Dates: start: 20211211, end: 20211212
  63. FILGRASTIM [Concomitant]
     Active Substance: FILGRASTIM
     Dosage: ONGOING: NO
     Dates: start: 20220101, end: 20220103
  64. FILGRASTIM [Concomitant]
     Active Substance: FILGRASTIM
     Dosage: UNK
     Dates: start: 20220116

REACTIONS (4)
  - Sinus tachycardia [Recovered/Resolved]
  - Neutropenia [Recovered/Resolved]
  - Neutropenia [Recovered/Resolved]
  - Product use issue [Unknown]

NARRATIVE: CASE EVENT DATE: 20211112
